FAERS Safety Report 6075039-3 (Version None)
Quarter: 2009Q1

REPORT INFORMATION
  Report Type: 
  Country: None (occurrence: None)
  Receive Date: 20090212
  Receipt Date: 20090202
  Transmission Date: 20090719
  Serious: Yes (Death, Life-Threatening)
  Sender: FDA-Public Use
  Company Number: JP-NOVOPROD-280846

PATIENT
  Age: 48 Year
  Sex: Male
  Weight: 70 kg

DRUGS (4)
  1. NOVOSEVEN [Suspect]
     Indication: HAEMORRHAGE
     Dosage: 5.4 MG, QD
     Route: 042
     Dates: start: 20080916, end: 20080916
  2. TACHOCOMB                          /01721101/ [Concomitant]
     Indication: HAEMORRHAGE
  3. RED BLOOD CELLS [Concomitant]
  4. FRESH FROZEN PLASMA [Concomitant]

REACTIONS (1)
  - CEREBRAL INFARCTION [None]
